FAERS Safety Report 6471919-5 (Version None)
Quarter: 2009Q4

REPORT INFORMATION
  Report Type: 
  Country: None (occurrence: None)
  Receive Date: 20091203
  Receipt Date: 20091106
  Transmission Date: 20100525
  Serious: Yes (Disabling, Other)
  Sender: FDA-Public Use
  Company Number: US-PFIZER INC-2006028318

PATIENT
  Age: 52 Year
  Sex: Female

DRUGS (18)
  1. XANAX [Interacting]
     Indication: DEPRESSION
     Route: 065
  2. XANAX [Interacting]
     Indication: ANXIETY
  3. XANAX [Interacting]
     Indication: HYPERTENSION
  4. XANAX [Interacting]
     Indication: STRESS
  5. ZOLOFT [Interacting]
     Indication: ANXIETY
     Route: 065
  6. ZOLOFT [Interacting]
     Indication: DEPRESSION
  7. ZOLOFT [Interacting]
     Indication: HYPERTENSION
  8. ZOLOFT [Interacting]
     Indication: STRESS
  9. LIPITOR [Suspect]
  10. DETROL LA [Suspect]
     Route: 065
     Dates: start: 20051101
  11. CYANOCOBALAMIN [Interacting]
     Indication: ASTHENIA
     Route: 060
  12. NEXIUM [Concomitant]
     Route: 065
  13. TRAMADOL HCL [Concomitant]
     Route: 065
  14. HYDROCODONE [Concomitant]
     Route: 065
  15. INDERAL [Concomitant]
     Route: 065
  16. DIPHENHYDRAMINE HCL [Concomitant]
     Route: 065
  17. DICYCLOMINE [Concomitant]
     Route: 065
  18. LACTINEX [Concomitant]
     Route: 065

REACTIONS (20)
  - ALOPECIA [None]
  - ASTHENIA [None]
  - BLADDER DISORDER [None]
  - CARPAL TUNNEL SYNDROME [None]
  - CYSTITIS INTERSTITIAL [None]
  - DRUG INEFFECTIVE [None]
  - DRUG INTERACTION [None]
  - FIBROMYALGIA [None]
  - GASTRITIS [None]
  - MENTAL DISORDER [None]
  - MITRAL VALVE PROLAPSE [None]
  - MOVEMENT DISORDER [None]
  - OCCUPATIONAL PHYSICAL PROBLEM [None]
  - OOPHORECTOMY [None]
  - OSTEOPENIA [None]
  - OSTEOPOROSIS [None]
  - PAIN [None]
  - PEPTIC ULCER HAEMORRHAGE [None]
  - SMALL INTESTINAL HAEMORRHAGE [None]
  - UTERINE CANCER [None]
